FAERS Safety Report 21031062 (Version 2)
Quarter: 2023Q2

REPORT INFORMATION
  Report Type: Spontaneous
  Country: US (occurrence: None)
  Receive Date: 20220701
  Receipt Date: 20230517
  Transmission Date: 20230722
  Serious: No
  Sender: FDA-Public Use
  Company Number: US-ROCHE-3070266

PATIENT
  Age: 70 Year
  Sex: Female
  Weight: 70.37 kg

DRUGS (5)
  1. ACTEMRA [Suspect]
     Active Substance: TOCILIZUMAB
     Indication: Scleroderma
     Dosage: ONGOING: YES
     Route: 058
     Dates: start: 20220330
  2. ACTEMRA [Suspect]
     Active Substance: TOCILIZUMAB
  3. ACTEMRA [Suspect]
     Active Substance: TOCILIZUMAB
     Indication: Rheumatoid arthritis
  4. ACTEMRA [Suspect]
     Active Substance: TOCILIZUMAB
  5. AZATHIOPRINE [Concomitant]
     Active Substance: AZATHIOPRINE
     Indication: Scleroderma
     Dosage: THREE 50 MG TABLETS PER DOSE
     Route: 048
     Dates: end: 20220304

REACTIONS (5)
  - Exposure via skin contact [Unknown]
  - Product administration error [Unknown]
  - Injury associated with device [Not Recovered/Not Resolved]
  - Off label use [Unknown]
  - Drug delivery system malfunction [Unknown]

NARRATIVE: CASE EVENT DATE: 20220330
